FAERS Safety Report 4310144-0 (Version None)
Quarter: 2004Q1

REPORT INFORMATION
  Report Type: 
  Country: None (occurrence: None)
  Receive Date: 20040227
  Receipt Date: 20040113
  Transmission Date: 20041129
  Serious: No
  Sender: FDA-Public Use
  Company Number: FABR-10438

PATIENT
  Sex: Male
  Weight: 115 kg

DRUGS (1)
  1. FABRAZYME [Suspect]
     Indication: FABRY'S DISEASE
     Dosage: 1 MG/KH IV
     Route: 042
     Dates: start: 20031217

REACTIONS (3)
  - DYSPEPSIA [None]
  - TACHYCARDIA [None]
  - URTICARIA LOCALISED [None]
